FAERS Safety Report 8061941-X (Version None)
Quarter: 2012Q1

REPORT INFORMATION
  Report Type: 
  Country: None (occurrence: None)
  Receive Date: 20120117
  Receipt Date: 20120109
  Transmission Date: 20120608
  Serious: Yes (Other)
  Sender: FDA-Public Use
  Company Number: 2011MA001522

PATIENT
  Sex: Female
  Weight: 86.1834 kg

DRUGS (21)
  1. DILANTIN [Concomitant]
  2. APAP TAB [Concomitant]
  3. CALCIUM [Concomitant]
  4. CYCLOBENZAPRINE [Concomitant]
  5. VIGAMOX [Concomitant]
  6. CARAFATE [Concomitant]
  7. DIAZEPAM [Concomitant]
  8. OXYBUTYNIN [Concomitant]
  9. PANTOPRAZOLE [Concomitant]
  10. ALENDRONATE SODIUM [Concomitant]
  11. IBUPROFEN [Concomitant]
  12. KETOPROFEN [Concomitant]
  13. LOVASTATIN [Concomitant]
  14. CODEINE [Concomitant]
  15. RANITIDINE [Concomitant]
  16. METOCLOPRAMIDE [Suspect]
     Indication: GASTROOESOPHAGEAL REFLUX DISEASE
     Dosage: 10 MG;QID;PO
     Route: 048
     Dates: start: 20071024, end: 20091205
  17. FLUOXETINE [Concomitant]
  18. GABAPENTIN [Concomitant]
  19. HYDROCODONE [Concomitant]
  20. NITROFURANTOIN [Concomitant]
  21. OXYCODONE HCL [Concomitant]

REACTIONS (8)
  - EMOTIONAL DISORDER [None]
  - ECONOMIC PROBLEM [None]
  - AKATHISIA [None]
  - EXTRAPYRAMIDAL DISORDER [None]
  - TARDIVE DYSKINESIA [None]
  - BRUXISM [None]
  - DYSTONIA [None]
  - INCORRECT DRUG ADMINISTRATION DURATION [None]
